FAERS Safety Report 4522782-0 (Version None)
Quarter: 2004Q4

REPORT INFORMATION
  Report Type: 
  Country: None (occurrence: None)
  Receive Date: 20041209
  Receipt Date: 20040810
  Transmission Date: 20050328
  Serious: Yes (Hospitalization)
  Sender: FDA-Public Use
  Company Number: JP-MERCK-0408USA00822

PATIENT
  Age: 74 Year
  Sex: Female

DRUGS (18)
  1. NOROXIN [Suspect]
     Indication: URINARY INCONTINENCE
     Route: 048
     Dates: start: 20040622, end: 20040624
  2. NOROXIN [Suspect]
     Indication: URINARY TRACT INFECTION
     Route: 048
     Dates: start: 20040622, end: 20040624
  3. GANATON [Concomitant]
     Indication: URINARY INCONTINENCE
     Route: 048
     Dates: start: 20040622, end: 20040624
  4. GANATON [Concomitant]
     Indication: URINARY TRACT INFECTION
     Route: 048
     Dates: start: 20040622, end: 20040624
  5. EBRANTIL [Concomitant]
     Indication: URINARY INCONTINENCE
     Route: 048
     Dates: start: 20040622, end: 20040624
  6. EBRANTIL [Concomitant]
     Indication: URINARY TRACT INFECTION
     Route: 048
     Dates: start: 20040622, end: 20040624
  7. DISTIGMINE BROMIDE [Concomitant]
     Indication: URINARY INCONTINENCE
     Route: 048
     Dates: start: 20040622, end: 20040624
  8. DISTIGMINE BROMIDE [Concomitant]
     Indication: URINARY TRACT INFECTION
     Route: 048
     Dates: start: 20040622, end: 20040624
  9. SYMMETREL [Concomitant]
     Route: 048
  10. CABERGOLINE [Concomitant]
     Route: 048
  11. PRORENAL [Concomitant]
     Route: 048
  12. MADOPAR [Concomitant]
     Route: 048
  13. MOBIC [Concomitant]
     Route: 048
  14. JUVELA [Concomitant]
     Route: 048
  15. MICARDIS [Concomitant]
     Route: 048
  16. AMOXAPINE [Concomitant]
     Route: 048
  17. ROHYPNOL [Concomitant]
     Route: 048
  18. DALMATE [Concomitant]
     Route: 048

REACTIONS (3)
  - ADVERSE EVENT [None]
  - HYPOXIA [None]
  - RHABDOMYOLYSIS [None]
